FAERS Safety Report 11495593 (Version 2)
Quarter: 2015Q4

REPORT INFORMATION
  Report Type: Spontaneous
  Country: US (occurrence: US)
  Receive Date: 20150911
  Receipt Date: 20151001
  Transmission Date: 20160304
  Serious: Yes (Hospitalization, Other)
  Sender: FDA-Public Use
  Company Number: US-UNITED THERAPEUTICS-UNT-2015-010439

PATIENT
  Age: 68 Year
  Sex: Female
  Weight: 60.32 kg

DRUGS (1)
  1. REMODULIN [Suspect]
     Active Substance: TREPROSTINIL
     Indication: PULMONARY HYPERTENSION
     Dosage: 0.094 ?G/KG, CONTINUING
     Route: 041
     Dates: start: 20140117

REACTIONS (2)
  - Intestinal prolapse [Unknown]
  - Bladder disorder [Unknown]

NARRATIVE: CASE EVENT DATE: 20150903
